FAERS Safety Report 17486869 (Version 1)
Quarter: 2020Q1

REPORT INFORMATION
  Report Type: Spontaneous
  Country: IT (occurrence: IT)
  Receive Date: 20200303
  Receipt Date: 20200303
  Transmission Date: 20200409
  Serious: Yes (Hospitalization, Other)
  Sender: FDA-Public Use
  Company Number: IT-SA-2020SA052849

PATIENT
  Age: 35 Year
  Sex: Male

DRUGS (2)
  1. RIFAMPICIN [Suspect]
     Active Substance: RIFAMPIN
     Indication: PROPHYLACTIC CHEMOTHERAPY
  2. RIFAMPICIN [Suspect]
     Active Substance: RIFAMPIN
     Indication: MENINGOCOCCAL INFECTION

REACTIONS (4)
  - Meningococcal infection [Recovered/Resolved]
  - Pyrexia [Recovered/Resolved]
  - Oropharyngeal pain [Recovered/Resolved]
  - Drug resistance [Recovered/Resolved]
